FAERS Safety Report 4752553-1 (Version None)
Quarter: 2005Q3

REPORT INFORMATION
  Report Type: 
  Country: None (occurrence: None)
  Receive Date: 20050823
  Receipt Date: 20050810
  Transmission Date: 20060218
  Serious: Yes (Other)
  Sender: FDA-Public Use
  Company Number: 2005115348

PATIENT
  Age: 42 Year
  Sex: Male
  Weight: 74 kg

DRUGS (2)
  1. XALATAN [Suspect]
     Indication: GLAUCOMA
     Dosage: 1 DROP (1 IN 1 D), OPHTHALMIC
     Route: 047
     Dates: start: 20050114, end: 20050201
  2. AMOXICILLIN [Concomitant]

REACTIONS (9)
  - CHEST PAIN [None]
  - COUGH [None]
  - DEPRESSION [None]
  - DYSPNOEA [None]
  - FORCED EXPIRATORY VOLUME ABNORMAL [None]
  - PANIC ATTACK [None]
  - PEAK EXPIRATORY FLOW RATE DECREASED [None]
  - RESPIRATORY TRACT INFECTION [None]
  - SPUTUM DISCOLOURED [None]
